FAERS Safety Report 4833944-7 (Version None)
Quarter: 2005Q4

REPORT INFORMATION
  Report Type: 
  Country: None (occurrence: None)
  Receive Date: 20051118
  Receipt Date: 20051118
  Transmission Date: 20060501
  Serious: Yes (Hospitalization, Other)
  Sender: FDA-Public Use
  Company Number: None

PATIENT
  Age: 77 Year
  Sex: Female
  Weight: 112 kg

DRUGS (8)
  1. COUMADIN [Suspect]
     Indication: ATRIAL FIBRILLATION
     Dosage: DAILY PO   CHRONIC MEDICATION
     Route: 048
  2. ZOLOFT [Concomitant]
  3. AVANDIA [Concomitant]
  4. HYDROXYZINE [Concomitant]
  5. INSULIN [Concomitant]
  6. AMIODARONE [Concomitant]
  7. CARTIA XT [Concomitant]
  8. DIGOXIN [Concomitant]

REACTIONS (6)
  - ASTHENIA [None]
  - ATRIAL FIBRILLATION [None]
  - DRUG TOXICITY [None]
  - FATIGUE [None]
  - RECTAL HAEMORRHAGE [None]
  - UPPER RESPIRATORY TRACT INFECTION [None]
